FAERS Safety Report 5446436-1 (Version None)
Quarter: 2007Q3

REPORT INFORMATION
  Report Type: 
  Country: None (occurrence: None)
  Receive Date: 20070907
  Receipt Date: 20070830
  Transmission Date: 20080115
  Serious: Yes (Disabling, Other)
  Sender: FDA-Public Use
  Company Number: US-GENENTECH-228722

PATIENT
  Sex: Female
  Weight: 91.6 kg

DRUGS (20)
  1. RITUXIMAB [Suspect]
     Indication: RHEUMATOID ARTHRITIS
     Dosage: 1000 MG, DAYS 1+15
     Route: 042
     Dates: start: 20060503, end: 20060517
  2. METHOTREXATE [Concomitant]
     Indication: RHEUMATOID ARTHRITIS
     Dosage: 125 MG, UNK
     Route: 048
     Dates: start: 20060501
  3. FOLTX [Concomitant]
     Indication: RHEUMATOID ARTHRITIS
     Dosage: 1 MG, UNK
     Route: 048
     Dates: start: 20060323
  4. CELEBREX [Concomitant]
     Indication: RHEUMATOID ARTHRITIS
     Dosage: 200 MG, UNK
     Route: 048
     Dates: start: 20060517
  5. PREDNISONE [Concomitant]
     Indication: RHEUMATOID ARTHRITIS
     Dosage: 10 MG, UNK
     Route: 048
     Dates: start: 20051021, end: 20060723
  6. PREDNISONE [Concomitant]
     Dosage: 7.5 MG, UNK
     Route: 048
     Dates: start: 20060324, end: 20060803
  7. PREDNISONE [Concomitant]
     Dosage: 5 MG, UNK
     Route: 048
     Dates: start: 20060811
  8. LEXAPRO [Concomitant]
     Indication: DEPRESSION
  9. FOSAMAX [Concomitant]
     Indication: OSTEOPENIA
  10. ISOSORBIDE DINITRATE [Concomitant]
     Indication: CORONARY ARTERY DISEASE
  11. NITROGYLCERINE [Concomitant]
     Indication: CHEST PAIN
  12. PLAVIX [Concomitant]
     Indication: ANTICOAGULANT THERAPY
  13. OXYCODONE HCL [Concomitant]
     Indication: PAIN
  14. VITAMIN D [Concomitant]
     Indication: VITAMIN SUPPLEMENTATION
  15. ASCORBIC ACID [Concomitant]
     Indication: VITAMIN SUPPLEMENTATION
  16. DARVOCET [Concomitant]
     Indication: PAIN
  17. CALCIUM [Concomitant]
     Indication: VITAMIN SUPPLEMENTATION
  18. FISH OIL [Concomitant]
     Indication: VITAMIN SUPPLEMENTATION
     Dates: end: 20061001
  19. CORTISONE ACETATE TAB [Concomitant]
     Indication: PAIN
  20. ASPIRIN [Concomitant]
     Indication: ANTICOAGULANT THERAPY

REACTIONS (7)
  - ACTIVITIES OF DAILY LIVING IMPAIRED [None]
  - BONE CYST [None]
  - BONE MARROW OEDEMA [None]
  - COMPRESSION FRACTURE [None]
  - DRUG INEFFECTIVE [None]
  - INSOMNIA [None]
  - OSTEONECROSIS [None]
